FAERS Safety Report 8517649-7 (Version None)
Quarter: 2012Q3

REPORT INFORMATION
  Report Type: 
  Country: None (occurrence: None)
  Receive Date: 20120718
  Receipt Date: 20100701
  Transmission Date: 20120928
  Serious: Yes (Death)
  Sender: FDA-Public Use
  Company Number: US-ROCHE-1088000

PATIENT
  Sex: Female

DRUGS (2)
  1. LUCENTIS [Suspect]
     Indication: EYE OEDEMA
  2. LUCENTIS [Suspect]
     Indication: RETINAL VEIN OCCLUSION
     Dosage: 0.5 CC, 1-2 MONTHS
     Route: 065
     Dates: start: 20080725, end: 20100810

REACTIONS (1)
  - DEATH [None]
